FAERS Safety Report 8873304 (Version 4)
Quarter: 2013Q2

REPORT INFORMATION
  Report Type: Spontaneous
  Country: US (occurrence: US)
  Receive Date: 20121029
  Receipt Date: 20130628
  Transmission Date: 20140414
  Serious: Yes (Hospitalization, Other)
  Sender: FDA-Public Use
  Company Number: US-009507513-1210USA010436

PATIENT
  Sex: Female
  Weight: 50.79 kg

DRUGS (17)
  1. FOSAMAX [Suspect]
     Indication: OSTEOPOROSIS
     Dosage: 10 MG, UNK
     Route: 048
     Dates: start: 19971202, end: 200101
  2. FOSAMAX [Suspect]
     Dosage: 70 MG, QW
     Route: 048
     Dates: start: 200101, end: 200707
  3. ALENDRONATE SODIUM [Suspect]
     Indication: OSTEOPOROSIS
     Dosage: 70 MG, QW
     Route: 048
     Dates: start: 20100807, end: 201102
  4. CALCIUM (UNSPECIFIED) [Concomitant]
     Dosage: 600 MG, TID
     Dates: start: 1995
  5. ONE-A-DAY ESSENTIAL VITAMINS [Concomitant]
     Dosage: UNK
     Dates: start: 1995
  6. CALTRATE + D [Concomitant]
     Indication: OSTEOPOROSIS
     Dosage: 600 MG, TID
     Route: 048
  7. FLONASE [Concomitant]
     Indication: RHINITIS ALLERGIC
     Dosage: 1 SPRAY PER NOSTRIL QD
  8. ALLEGRA [Concomitant]
     Indication: RHINITIS ALLERGIC
     Dosage: 180 MG, QD
     Dates: start: 1999, end: 200312
  9. ALLEGRA [Concomitant]
     Indication: HYPERSENSITIVITY
  10. ALLEGRA-D [Concomitant]
     Indication: RHINITIS ALLERGIC
     Dosage: UNK
     Dates: start: 1999, end: 201006
  11. ALLEGRA-D [Concomitant]
     Indication: HYPERSENSITIVITY
  12. PATANOL [Concomitant]
     Indication: RHINITIS ALLERGIC
  13. PREMPRO [Concomitant]
     Indication: POSTMENOPAUSE
     Dosage: UNK
     Dates: start: 1998
  14. PREMPRO [Concomitant]
     Indication: OSTEOPOROSIS
  15. FEXOFENADINE HYDROCHLORIDE [Concomitant]
     Indication: HYPERSENSITIVITY
     Dosage: UNK
     Dates: start: 200608, end: 2011
  16. FLUTICASONE [Concomitant]
     Indication: HYPERSENSITIVITY
     Dosage: UNK
     Dates: start: 2008
  17. NASONEX [Concomitant]
     Indication: HYPERSENSITIVITY
     Dosage: UNK
     Dates: start: 199904, end: 200801

REACTIONS (35)
  - Intramedullary rod insertion [Unknown]
  - Fracture nonunion [Unknown]
  - Medical device removal [Unknown]
  - Transient ischaemic attack [Unknown]
  - Intramedullary rod insertion [Unknown]
  - Bone graft [Unknown]
  - Femur fracture [Unknown]
  - Hypertension [Recovered/Resolved]
  - Hyperlipidaemia [Unknown]
  - Tachycardia [Recovered/Resolved]
  - Iron deficiency anaemia [Unknown]
  - Carotid artery stenosis [Unknown]
  - Cerebral small vessel ischaemic disease [Unknown]
  - Urinary tract infection [Unknown]
  - Femur fracture [Unknown]
  - Femur fracture [Unknown]
  - Pain in extremity [Unknown]
  - Tooth extraction [Unknown]
  - Sinus tachycardia [Unknown]
  - Endodontic procedure [Unknown]
  - Blood glucose increased [Unknown]
  - Low turnover osteopathy [Unknown]
  - Dental prosthesis placement [Unknown]
  - Fatigue [Unknown]
  - Medical device complication [Unknown]
  - Ligament rupture [Unknown]
  - Cyst removal [Unknown]
  - Presyncope [Unknown]
  - Hot flush [Unknown]
  - Transient ischaemic attack [Unknown]
  - Heart rate irregular [Unknown]
  - Infection [Unknown]
  - Arthralgia [Unknown]
  - Dizziness [Unknown]
  - Nausea [Unknown]
